FAERS Safety Report 7592559-0 (Version None)
Quarter: 2011Q3

REPORT INFORMATION
  Report Type: 
  Country: None (occurrence: None)
  Receive Date: 20110706
  Receipt Date: 20110630
  Transmission Date: 20111222
  Serious: Yes (Other)
  Sender: FDA-Public Use
  Company Number: US-PFIZER INC-2011147238

PATIENT
  Sex: Female
  Weight: 51.25 kg

DRUGS (5)
  1. LYRICA [Interacting]
     Indication: PAIN
     Dosage: 75 MG, DAILY
     Route: 048
     Dates: start: 20110627
  2. ZANAFLEX [Interacting]
     Indication: PAIN
     Dosage: 4 MG, UNK
     Route: 048
  3. PERCOCET [Suspect]
     Indication: PAIN
     Dosage: UNK
     Route: 048
  4. BUTRANS [Concomitant]
     Indication: PAIN
     Dosage: 5 UG, UNK
     Route: 062
  5. XANAX [Interacting]
     Dosage: UNK
     Route: 048

REACTIONS (11)
  - ABDOMINAL PAIN UPPER [None]
  - VISION BLURRED [None]
  - BIPOLAR DISORDER [None]
  - ENERGY INCREASED [None]
  - INSOMNIA [None]
  - OROPHARYNGEAL PAIN [None]
  - DYSPHAGIA [None]
  - HUNGER [None]
  - FEELING ABNORMAL [None]
  - DRUG INTERACTION [None]
  - MALAISE [None]
